FAERS Safety Report 13091843 (Version 1)
Quarter: 2017Q1

REPORT INFORMATION
  Report Type: Spontaneous
  Country: US (occurrence: US)
  Receive Date: 20170106
  Receipt Date: 20170106
  Transmission Date: 20170428
  Serious: Yes (Death, Other)
  Sender: FDA-Public Use
  Company Number: US-ZYDUS-013073

PATIENT
  Age: 63 Year
  Sex: Male

DRUGS (2)
  1. SOFOSBUVIR/LEDIPASVIR [Suspect]
     Active Substance: LEDIPASVIR\SOFOSBUVIR
     Indication: HEPATITIS C
     Dosage: 400MG/ 90 MG
     Route: 048
  2. RIBAVIRIN. [Suspect]
     Active Substance: RIBAVIRIN
     Indication: HEPATITIS C
     Dosage: 400MG TO 1200 MG
     Route: 048

REACTIONS (2)
  - Lung neoplasm malignant [Fatal]
  - Respiratory failure [Fatal]
